FAERS Safety Report 4539753-0 (Version None)
Quarter: 2004Q4

REPORT INFORMATION
  Report Type: 
  Country: None (occurrence: None)
  Receive Date: 20041223
  Receipt Date: 20041215
  Transmission Date: 20050328
  Serious: Yes (Disabling, Other)
  Sender: FDA-Public Use
  Company Number: 2004113222

PATIENT
  Age: 77 Year
  Sex: Female

DRUGS (1)
  1. LIPITOR [Suspect]
     Indication: ILL-DEFINED DISORDER

REACTIONS (5)
  - CEREBROVASCULAR ACCIDENT [None]
  - FATIGUE [None]
  - GASTRIC ULCER [None]
  - LETHARGY [None]
  - SUDDEN ONSET OF SLEEP [None]
